FAERS Safety Report 8135393-5 (Version None)
Quarter: 2012Q1

REPORT INFORMATION
  Report Type: 
  Country: None (occurrence: None)
  Receive Date: 20120214
  Receipt Date: 20120201
  Transmission Date: 20120608
  Serious: Yes (Hospitalization)
  Sender: FDA-Public Use
  Company Number: JP-ROCHE-1036993

PATIENT
  Sex: Female

DRUGS (2)
  1. PREDNISOLONE [Concomitant]
     Indication: CASTLEMAN'S DISEASE
     Route: 065
     Dates: end: 20110920
  2. ACTEMRA [Suspect]
     Indication: CASTLEMAN'S DISEASE
     Dosage: DOSAGE IS UNCERTAIN.
     Route: 041
     Dates: start: 20110920

REACTIONS (1)
  - LEUKOENCEPHALOPATHY [None]
